FAERS Safety Report 4577436-1 (Version None)
Quarter: 2005Q1

REPORT INFORMATION
  Report Type: 
  Country: None (occurrence: None)
  Receive Date: 20050208
  Receipt Date: 20050121
  Transmission Date: 20050727
  Serious: No
  Sender: FDA-Public Use
  Company Number: AU-SANOFI-SYNTHELABO-A01200500338

PATIENT

DRUGS (1)
  1. CLOPIDOGREL BISULFATE [Suspect]
     Dosage: ORAL
     Route: 048

REACTIONS (2)
  - INTESTINAL OBSTRUCTION [None]
  - POST PROCEDURAL COMPLICATION [None]
